FAERS Safety Report 6197434-4 (Version None)
Quarter: 2009Q2

REPORT INFORMATION
  Report Type: 
  Country: None (occurrence: None)
  Receive Date: 20090521
  Receipt Date: 20090513
  Transmission Date: 20091009
  Serious: Yes (Other)
  Sender: FDA-Public Use
  Company Number: US-ASTRAZENECA-2009UW12329

PATIENT
  Age: 65 Year
  Sex: Female
  Weight: 79.8 kg

DRUGS (13)
  1. NEXIUM [Suspect]
     Route: 048
  2. WARFARIN SODIUM [Concomitant]
  3. LEVOTHYROXINE SODIUM [Concomitant]
     Indication: THYROID DISORDER
  4. SIMVASTATIN [Concomitant]
  5. NITROFUR [Concomitant]
     Indication: KIDNEY INFECTION
  6. FLECAINIDE ACETATE [Concomitant]
     Indication: ATRIAL FIBRILLATION
  7. AMLODIPINE [Concomitant]
     Indication: BLOOD PRESSURE
  8. METOPROLOL [Concomitant]
  9. EFFEXOR [Concomitant]
  10. LOVAZA [Concomitant]
     Dosage: 2TBSP DAILY
  11. BUSTIRONE [Concomitant]
  12. XANAX [Concomitant]
  13. VITAMIN [Concomitant]

REACTIONS (1)
  - KIDNEY INFECTION [None]
